FAERS Safety Report 20523581 (Version 1)
Quarter: 2022Q1

REPORT INFORMATION
  Report Type: Spontaneous
  Country: US (occurrence: US)
  Receive Date: 20220228
  Receipt Date: 20220228
  Transmission Date: 20220423
  Serious: No
  Sender: FDA-Public Use
  Company Number: US-GSKCCFUS-Case-01304279_AE-75978

PATIENT
  Age: 75 Year
  Sex: Female

DRUGS (1)
  1. FLOVENT DISKUS [Suspect]
     Active Substance: FLUTICASONE PROPIONATE
     Indication: Product used for unknown indication
     Dosage: 100 MICRO UNIT, BID
     Route: 055
     Dates: start: 20220222

REACTIONS (2)
  - Wrong technique in device usage process [Unknown]
  - Product confusion [Unknown]

NARRATIVE: CASE EVENT DATE: 20220222
